FAERS Safety Report 5744399-2 (Version None)
Quarter: 2008Q2

REPORT INFORMATION
  Report Type: 
  Country: None (occurrence: None)
  Receive Date: 20080520
  Receipt Date: 20080514
  Transmission Date: 20081010
  Serious: Yes (Other)
  Sender: FDA-Public Use
  Company Number: IE-ELI_LILLY_AND_COMPANY-IE200801005371

PATIENT
  Sex: Female

DRUGS (4)
  1. BYETTA [Suspect]
     Indication: TYPE 2 DIABETES MELLITUS
     Dosage: 5 UG, UNKNOWN
     Route: 058
     Dates: start: 20080111
  2. BYETTA [Suspect]
     Dosage: 10 MG, UNKNOWN
     Route: 058
     Dates: start: 20080201, end: 20080213
  3. DIAMICRON MR [Concomitant]
     Dosage: 120 MG, UNKNOWN
     Route: 048
  4. INSULIN [Concomitant]
     Dosage: UNK, UNK

REACTIONS (2)
  - BLOOD GLUCOSE INCREASED [None]
  - NAUSEA [None]
